FAERS Safety Report 4665434-9 (Version None)
Quarter: 2005Q2

REPORT INFORMATION
  Report Type: 
  Country: None (occurrence: None)
  Receive Date: 20050517
  Receipt Date: 20050502
  Transmission Date: 20051028
  Serious: Yes (Hospitalization, Other)
  Sender: FDA-Public Use
  Company Number: USA020312084

PATIENT
  Age: 76 Year
  Sex: Female
  Weight: 81 kg

DRUGS (12)
  1. HUMALOG [Suspect]
     Indication: DIABETES MELLITUS
     Dosage: 36 U DAY
     Dates: start: 20020101
  2. HUMALOG [Suspect]
     Indication: DIABETES MELLITUS
     Dates: start: 20010101
  3. HUMULIN 70/30 [Suspect]
     Indication: DIABETES MELLITUS
     Dates: start: 20011201, end: 20011201
  4. HUMULIN N [Suspect]
     Indication: DIABETES MELLITUS
     Dates: start: 20011201, end: 20020101
  5. METFORMIN [Concomitant]
  6. PIOGLITAZONE HCL [Concomitant]
  7. GLYBURIDE [Concomitant]
  8. CENTRUM [Concomitant]
  9. ATENOLOL [Concomitant]
  10. WARFARIN [Concomitant]
  11. LIPITOR [Concomitant]
  12. SURFAK (DOCUSATE CALCIUM) [Concomitant]

REACTIONS (16)
  - BLINDNESS [None]
  - BLOOD CHOLESTEROL INCREASED [None]
  - BLOOD GLUCOSE FLUCTUATION [None]
  - CIRCUMSTANCE OR INFORMATION CAPABLE OF LEADING TO MEDICATION ERROR [None]
  - CONDITION AGGRAVATED [None]
  - CORONARY ARTERIAL STENT INSERTION [None]
  - DEVICE FAILURE [None]
  - DIABETIC RETINOPATHY [None]
  - DIFFICULTY IN WALKING [None]
  - DIZZINESS [None]
  - HYPERTENSION [None]
  - IRRITABLE BOWEL SYNDROME [None]
  - PHARMACEUTICAL PRODUCT COMPLAINT [None]
  - POOR QUALITY DRUG ADMINISTERED [None]
  - VISUAL ACUITY REDUCED [None]
  - WRONG DRUG ADMINISTERED [None]
